FAERS Safety Report 13238962 (Version 3)
Quarter: 2017Q2

REPORT INFORMATION
  Report Type: Spontaneous
  Country: CH (occurrence: CH)
  Receive Date: 20170216
  Receipt Date: 20170410
  Transmission Date: 20170830
  Serious: Yes (Other)
  Sender: FDA-Public Use
  Company Number: CH-BAYER-2017-026664

PATIENT
  Age: 75 Year
  Sex: Male

DRUGS (2)
  1. XOFIGO [Suspect]
     Active Substance: RADIUM RA-223 DICHLORIDE
     Dosage: UNK
     Route: 042
     Dates: start: 201609
  2. JEVTANA [Concomitant]
     Active Substance: CABAZITAXEL

REACTIONS (5)
  - Neoplasm progression [None]
  - Metastases to lymph nodes [None]
  - Prostatic specific antigen increased [None]
  - General physical health deterioration [None]
  - Metastases to abdominal cavity [None]

NARRATIVE: CASE EVENT DATE: 20161007
